FAERS Safety Report 5472265-9 (Version None)
Quarter: 2007Q3

REPORT INFORMATION
  Report Type: 
  Country: None (occurrence: None)
  Receive Date: 20070927
  Receipt Date: 20070910
  Transmission Date: 20080115
  Serious: Yes (Other)
  Sender: FDA-Public Use
  Company Number: US-1162782

PATIENT
  Age: 68 Year
  Sex: Female
  Weight: 60.3284 kg

DRUGS (7)
  1. SYSTANE EYE DROPS [Suspect]
     Indication: DRY EYE
     Dosage: 1 GTT QD OPHTHALMIC
     Route: 047
     Dates: start: 20061213, end: 20070326
  2. NORVASC [Concomitant]
  3. PLAVIX [Concomitant]
  4. LEVOXYL [Concomitant]
  5. B-50 [Concomitant]
  6. METOPROLOL TARTRATE [Concomitant]
  7. FISH OIL [Concomitant]

REACTIONS (6)
  - CORNEAL SCAR [None]
  - EYE INFECTION [None]
  - INTRAOCULAR PRESSURE INCREASED [None]
  - NO REACTION ON PREVIOUS EXPOSURE TO DRUG [None]
  - SELF-MEDICATION [None]
  - ULCERATIVE KERATITIS [None]
